FAERS Safety Report 20965201 (Version 9)
Quarter: 2024Q3

REPORT INFORMATION
  Report Type: Report from Study
  Country: CH (occurrence: CH)
  Receive Date: 20220616
  Receipt Date: 20240927
  Transmission Date: 20241017
  Serious: Yes (Death, Other)
  Sender: ABBVIE
  Company Number: CH-ABBVIE-22K-151-4397865-00

PATIENT
  Age: 62 Year
  Sex: Male
  Weight: 80 kg

DRUGS (74)
  1. VENETOCLAX [Suspect]
     Active Substance: VENETOCLAX
     Indication: Acute myeloid leukaemia
     Route: 048
     Dates: start: 20220419, end: 20220509
  2. VENETOCLAX [Suspect]
     Active Substance: VENETOCLAX
     Indication: Acute myeloid leukaemia
     Route: 048
     Dates: start: 20220510, end: 20220620
  3. AZACITIDINE [Suspect]
     Active Substance: AZACITIDINE
     Indication: Product used for unknown indication
     Route: 065
     Dates: start: 20200419, end: 20220423
  4. CALCII CARBONAS [Concomitant]
     Indication: Product used for unknown indication
     Route: 048
     Dates: start: 20220408
  5. ESOMEPRAZOLE [Concomitant]
     Active Substance: ESOMEPRAZOLE
     Indication: Product used for unknown indication
     Route: 048
     Dates: start: 20220408
  6. VALACYCLOVIR [Concomitant]
     Active Substance: VALACYCLOVIR HYDROCHLORIDE
     Indication: Product used for unknown indication
     Route: 048
     Dates: start: 20220408
  7. LAMIVUDINE [Concomitant]
     Active Substance: LAMIVUDINE
     Indication: Product used for unknown indication
     Route: 048
     Dates: start: 20220412
  8. MEROPENEM [Concomitant]
     Active Substance: MEROPENEM
     Indication: Product used for unknown indication
     Route: 042
     Dates: start: 20220508, end: 20220508
  9. MEROPENEM [Concomitant]
     Active Substance: MEROPENEM
     Indication: Product used for unknown indication
     Route: 042
     Dates: start: 20220522, end: 20220523
  10. MEROPENEM [Concomitant]
     Active Substance: MEROPENEM
     Indication: Product used for unknown indication
     Route: 042
     Dates: start: 20220425, end: 20220425
  11. MEROPENEM [Concomitant]
     Active Substance: MEROPENEM
     Indication: Product used for unknown indication
     Route: 042
     Dates: start: 20220509, end: 20220515
  12. MEROPENEM [Concomitant]
     Active Substance: MEROPENEM
     Indication: Product used for unknown indication
     Route: 042
     Dates: start: 20220524
  13. MEROPENEM [Concomitant]
     Active Substance: MEROPENEM
     Indication: Product used for unknown indication
     Route: 042
     Dates: start: 20220419, end: 20220419
  14. MEROPENEM [Concomitant]
     Active Substance: MEROPENEM
     Indication: Product used for unknown indication
     Route: 042
     Dates: start: 20220516, end: 20220516
  15. MEROPENEM [Concomitant]
     Active Substance: MEROPENEM
     Indication: Product used for unknown indication
     Route: 042
     Dates: start: 20220420, end: 20220424
  16. RESOURCE 2.0+FIBRE [Concomitant]
     Indication: Product used for unknown indication
     Route: 048
     Dates: start: 20220420, end: 20220509
  17. MINERAL OIL [Concomitant]
     Active Substance: MINERAL OIL
     Indication: Product used for unknown indication
     Route: 048
     Dates: start: 20220414
  18. ENOXAPARIN [Concomitant]
     Active Substance: ENOXAPARIN
     Indication: Product used for unknown indication
     Route: 058
     Dates: start: 20220408, end: 20220412
  19. ENOXAPARIN [Concomitant]
     Active Substance: ENOXAPARIN
     Indication: Product used for unknown indication
     Route: 058
     Dates: start: 20220414, end: 20220419
  20. ENOXAPARIN [Concomitant]
     Active Substance: ENOXAPARIN
     Indication: Product used for unknown indication
     Route: 058
     Dates: start: 20220426, end: 20220501
  21. METAMIZOLE [Concomitant]
     Active Substance: METAMIZOLE
     Indication: Product used for unknown indication
     Dosage: TIME INTERVAL: AS NECESSARY: WHEN NEEDED
     Route: 048
     Dates: start: 20220411
  22. POTASSIUM PHOSPHATE, MONOBASIC [Concomitant]
     Active Substance: POTASSIUM PHOSPHATE, MONOBASIC
     Indication: Product used for unknown indication
     Route: 042
     Dates: start: 20220414, end: 20220414
  23. METRONIDAZOLE [Concomitant]
     Active Substance: METRONIDAZOLE
     Indication: Product used for unknown indication
     Route: 048
     Dates: start: 20220408, end: 20220408
  24. METRONIDAZOLE [Concomitant]
     Active Substance: METRONIDAZOLE
     Indication: Product used for unknown indication
     Route: 048
     Dates: start: 20220409, end: 20220418
  25. METRONIDAZOLE [Concomitant]
     Active Substance: METRONIDAZOLE
     Indication: Product used for unknown indication
     Route: 048
     Dates: start: 20220419, end: 20220419
  26. METRONIDAZOLE [Concomitant]
     Active Substance: METRONIDAZOLE
     Indication: Product used for unknown indication
     Route: 042
     Dates: start: 20220610, end: 20220610
  27. METRONIDAZOLE [Concomitant]
     Active Substance: METRONIDAZOLE
     Indication: Product used for unknown indication
     Route: 042
     Dates: start: 20220611
  28. VITAMIN K1 [Concomitant]
     Active Substance: PHYTONADIONE
     Indication: Product used for unknown indication
     Route: 042
     Dates: start: 20220408, end: 20220418
  29. VITAMIN K1 [Concomitant]
     Active Substance: PHYTONADIONE
     Indication: Product used for unknown indication
     Route: 048
     Dates: start: 20220523
  30. VITAMIN K1 [Concomitant]
     Active Substance: PHYTONADIONE
     Indication: Product used for unknown indication
     Route: 048
     Dates: start: 20220506, end: 20220515
  31. JOULIE SOL [Concomitant]
     Indication: Product used for unknown indication
     Route: 048
     Dates: start: 20220415, end: 20220418
  32. JOULIE SOL [Concomitant]
     Indication: Product used for unknown indication
     Route: 048
     Dates: start: 20220419, end: 20220419
  33. ACETAMINOPHEN [Concomitant]
     Active Substance: ACETAMINOPHEN
     Indication: Product used for unknown indication
     Route: 048
     Dates: start: 20220411, end: 20220411
  34. ACETAMINOPHEN [Concomitant]
     Active Substance: ACETAMINOPHEN
     Indication: Product used for unknown indication
     Route: 042
     Dates: start: 20220412, end: 20220424
  35. ACETAMINOPHEN [Concomitant]
     Active Substance: ACETAMINOPHEN
     Indication: Product used for unknown indication
     Route: 042
     Dates: start: 20220522, end: 20220522
  36. ACETAMINOPHEN [Concomitant]
     Active Substance: ACETAMINOPHEN
     Indication: Product used for unknown indication
     Route: 042
     Dates: start: 20220523
  37. CEFEPIME HYDROCHLORIDE [Concomitant]
     Active Substance: CEFEPIME HYDROCHLORIDE
     Indication: Product used for unknown indication
     Route: 042
     Dates: start: 20220408, end: 20220408
  38. CEFEPIME HYDROCHLORIDE [Concomitant]
     Active Substance: CEFEPIME HYDROCHLORIDE
     Indication: Product used for unknown indication
     Route: 042
     Dates: start: 20220409, end: 20220409
  39. CEFEPIME HYDROCHLORIDE [Concomitant]
     Active Substance: CEFEPIME HYDROCHLORIDE
     Indication: Product used for unknown indication
     Route: 042
     Dates: start: 20220410, end: 20220419
  40. RESOURCE 2.0 [Concomitant]
     Indication: Product used for unknown indication
     Route: 048
     Dates: start: 20220420, end: 20220509
  41. MEROPENEMUM [Concomitant]
     Indication: Product used for unknown indication
     Route: 042
     Dates: start: 20220419, end: 20220419
  42. MEROPENEMUM [Concomitant]
     Indication: Product used for unknown indication
     Route: 042
     Dates: start: 20220420, end: 20220424
  43. MEROPENEMUM [Concomitant]
     Indication: Product used for unknown indication
     Route: 042
     Dates: start: 20220425, end: 20220425
  44. MEROPENEMUM [Concomitant]
     Indication: Product used for unknown indication
     Route: 042
     Dates: start: 20220508, end: 20220508
  45. MEROPENEMUM [Concomitant]
     Indication: Product used for unknown indication
     Route: 042
     Dates: start: 20220509, end: 20220515
  46. MEROPENEMUM [Concomitant]
     Indication: Product used for unknown indication
     Route: 042
     Dates: start: 20220516, end: 20220516
  47. MEROPENEMUM [Concomitant]
     Indication: Product used for unknown indication
     Route: 042
     Dates: start: 20220522, end: 20220523
  48. MEROPENEMUM [Concomitant]
     Indication: Product used for unknown indication
     Route: 042
     Dates: start: 20220524
  49. RASBURICASE [Concomitant]
     Active Substance: RASBURICASE
     Indication: Product used for unknown indication
     Route: 042
     Dates: start: 20220408, end: 20220408
  50. MAGNESIUM ASPARTATE [Concomitant]
     Active Substance: MAGNESIUM ASPARTATE
     Indication: Product used for unknown indication
     Route: 048
     Dates: start: 20220408, end: 20220425
  51. TORSEMIDE [Concomitant]
     Active Substance: TORSEMIDE
     Indication: Product used for unknown indication
     Route: 048
     Dates: start: 20220420, end: 20220421
  52. PLATELETS [Concomitant]
     Active Substance: HUMAN PLATELET, ALLOGENIC
     Indication: Product used for unknown indication
     Dosage: WHEN NEEDED
     Dates: start: 20220421
  53. ALLOPURINOL [Concomitant]
     Active Substance: ALLOPURINOL
     Indication: Product used for unknown indication
     Dates: start: 20220408, end: 20220425
  54. ONDANSETRON [Concomitant]
     Active Substance: ONDANSETRON
     Indication: Product used for unknown indication
     Dates: start: 20220419, end: 20220423
  55. NOXAFIL [Concomitant]
     Active Substance: POSACONAZOLE
     Indication: Product used for unknown indication
     Dates: start: 20220408, end: 20220409
  56. NOXAFIL [Concomitant]
     Active Substance: POSACONAZOLE
     Indication: Product used for unknown indication
     Dates: start: 20220509
  57. FILGRASTIM [Concomitant]
     Active Substance: FILGRASTIM
     Indication: Product used for unknown indication
     Route: 042
     Dates: start: 20220510, end: 20220515
  58. FILGRASTIM [Concomitant]
     Active Substance: FILGRASTIM
     Indication: Product used for unknown indication
     Route: 058
     Dates: start: 20220530
  59. VANCOMYCIN [Concomitant]
     Active Substance: VANCOMYCIN
     Indication: Product used for unknown indication
     Route: 042
     Dates: start: 20220522, end: 20220522
  60. VANCOMYCIN [Concomitant]
     Active Substance: VANCOMYCIN
     Indication: Product used for unknown indication
     Route: 042
     Dates: start: 20220523, end: 20220523
  61. VANCOMYCIN [Concomitant]
     Active Substance: VANCOMYCIN
     Indication: Product used for unknown indication
     Route: 042
     Dates: start: 20220601
  62. SODIUM PICOSULFATE MONOHYDRATE [Concomitant]
     Active Substance: SODIUM PICOSULFATE MONOHYDRATE
     Indication: Product used for unknown indication
     Route: 048
     Dates: start: 20220510, end: 20220601
  63. SODIUM PICOSULFATE MONOHYDRATE [Concomitant]
     Active Substance: SODIUM PICOSULFATE MONOHYDRATE
     Indication: Product used for unknown indication
     Route: 048
     Dates: start: 20220612, end: 20220619
  64. FOLIC ACID [Concomitant]
     Active Substance: FOLIC ACID
     Indication: Product used for unknown indication
     Route: 048
     Dates: start: 20220517
  65. FUROSEMIDE [Concomitant]
     Active Substance: FUROSEMIDE
     Indication: Product used for unknown indication
     Route: 042
     Dates: start: 20220523
  66. METOCLOPRAMIDE HYDROCHLORIDE [Concomitant]
     Active Substance: METOCLOPRAMIDE HYDROCHLORIDE
     Indication: Product used for unknown indication
     Route: 048
     Dates: start: 20220529
  67. METOCLOPRAMIDE HYDROCHLORIDE ANHYDROUS [Concomitant]
     Active Substance: METOCLOPRAMIDE HYDROCHLORIDE ANHYDROUS
     Indication: Product used for unknown indication
     Route: 042
     Dates: start: 20220526, end: 20220528
  68. MAGNESIUM ASPARTATE HYDROCHLORIDE [Concomitant]
     Active Substance: MAGNESIUM ASPARTATE HYDROCHLORIDE
     Indication: Product used for unknown indication
     Route: 048
     Dates: start: 20220530
  69. OLANZAPINE [Concomitant]
     Active Substance: OLANZAPINE
     Indication: Product used for unknown indication
     Route: 048
     Dates: start: 20220530, end: 20220604
  70. PARAFFINUM LIQUIDUM [Concomitant]
     Indication: Product used for unknown indication
     Route: 048
     Dates: start: 20220611
  71. PARAFFINUM LIQUIDUM [Concomitant]
     Indication: Product used for unknown indication
     Dosage: LAST ADMIN DATE: 2022
     Route: 048
     Dates: start: 20220414
  72. POTASSIUM CHLORIDE [Concomitant]
     Active Substance: POTASSIUM CHLORIDE
     Indication: Product used for unknown indication
     Route: 048
     Dates: start: 20220410, end: 20220426
  73. POTASSIUM CHLORIDE [Concomitant]
     Active Substance: POTASSIUM CHLORIDE
     Indication: Product used for unknown indication
     Route: 048
     Dates: start: 20220524, end: 20220526
  74. POTASSIUM CHLORIDE [Concomitant]
     Active Substance: POTASSIUM CHLORIDE
     Indication: Product used for unknown indication
     Route: 048
     Dates: start: 20220527

REACTIONS (17)
  - Clostridium colitis [Fatal]
  - Neutropenic colitis [Fatal]
  - White blood cell count decreased [Recovered/Resolved]
  - White blood cell count decreased [Recovered/Resolved]
  - Anal abscess [Unknown]
  - Thrombocytopenia [Recovered/Resolved]
  - Thrombocytopenia [Recovered/Resolved]
  - Tumour lysis syndrome [Recovered/Resolved]
  - Anaemia [Recovered/Resolved]
  - Thrombocytopenia [Unknown]
  - Thrombocytopenia [Recovered/Resolved]
  - Dyspnoea [Fatal]
  - Neutropenia [Not Recovered/Not Resolved]
  - Thrombocytopenia [Recovered/Resolved]
  - Ileus [Fatal]
  - Anal abscess [Fatal]
  - Febrile bone marrow aplasia [Fatal]

NARRATIVE: CASE EVENT DATE: 20220419
